FAERS Safety Report 8261647-8 (Version None)
Quarter: 2012Q2

REPORT INFORMATION
  Report Type: 
  Country: None (occurrence: None)
  Receive Date: 20120405
  Receipt Date: 20120405
  Transmission Date: 20120825
  Serious: Yes (Life-Threatening)
  Sender: FDA-Public Use
  Company Number: None

PATIENT
  Age: 51 Year
  Sex: Male
  Weight: 80.739 kg

DRUGS (1)
  1. PHENYLEPHRINE HCL [Suspect]
     Indication: PRIAPISM
     Dosage: 5000 MCG
     Route: 058
     Dates: start: 20120303, end: 20120303

REACTIONS (4)
  - HYPERTENSION [None]
  - BRADYCARDIA [None]
  - ACUTE MYOCARDIAL INFARCTION [None]
  - PULSELESS ELECTRICAL ACTIVITY [None]
